FAERS Safety Report 14585479 (Version 9)
Quarter: 2018Q3

REPORT INFORMATION
  Report Type: Spontaneous
  Country: US (occurrence: US)
  Receive Date: 20180301
  Receipt Date: 20180913
  Transmission Date: 20181010
  Serious: Yes (Other)
  Sender: FDA-Public Use
  Company Number: US-PFIZER INC-2018081312

PATIENT
  Age: 49 Year
  Sex: Male
  Weight: 100 kg

DRUGS (9)
  1. SUTENT [Suspect]
     Active Substance: SUNITINIB MALATE
     Dosage: 50 MG, CYCLIC, (28 DAYS ON/14 DAYS OFF)
     Dates: start: 20180402
  2. INSULIN [Concomitant]
     Active Substance: INSULIN NOS
     Indication: DIABETES MELLITUS
     Dosage: UNK
  3. METFORMIN [Concomitant]
     Active Substance: METFORMIN HYDROCHLORIDE
     Dosage: UNK
  4. SUTENT [Suspect]
     Active Substance: SUNITINIB MALATE
     Dosage: 50 MG, CYCLIC, [ONE WEEK ON/ONE WEEK OFF]
     Dates: start: 20180618, end: 20180717
  5. SUTENT [Suspect]
     Active Substance: SUNITINIB MALATE
     Dosage: 50 MG, CYCLIC (2 WEEKS ON / 1 WEEK OFF NOW)
  6. LOVASTATIN. [Concomitant]
     Active Substance: LOVASTATIN
     Dosage: UNK
  7. SUTENT [Suspect]
     Active Substance: SUNITINIB MALATE
     Dosage: 50 MG, CYCLIC, (28 DAYS ON/14 DAYS OFF)
     Dates: end: 20180401
  8. GLIPIZIDE. [Concomitant]
     Active Substance: GLIPIZIDE
     Dosage: UNK
  9. SUTENT [Suspect]
     Active Substance: SUNITINIB MALATE
     Indication: RENAL CANCER
     Dosage: 50 MG, CYCLIC (28 DAYS ON/14 DAYS OFF)
     Dates: start: 20180209

REACTIONS (12)
  - Dyspepsia [Recovering/Resolving]
  - Chromaturia [Unknown]
  - Constipation [Unknown]
  - Blood glucose fluctuation [Recovered/Resolved]
  - Lacrimation increased [Unknown]
  - Skin exfoliation [Recovered/Resolved]
  - Blister [Unknown]
  - Skin lesion [Unknown]
  - Nephrolithiasis [Unknown]
  - Skin discolouration [Unknown]
  - Mass [Unknown]
  - Rash macular [Unknown]

NARRATIVE: CASE EVENT DATE: 2018
